FAERS Safety Report 4819096-8 (Version None)
Quarter: 2005Q4

REPORT INFORMATION
  Report Type: 
  Country: None (occurrence: None)
  Receive Date: 20051101
  Receipt Date: 20051101
  Transmission Date: 20060501
  Serious: Yes (Other)
  Sender: FDA-Public Use
  Company Number: None

PATIENT
  Age: 46 Year
  Sex: Male
  Weight: 110 kg

DRUGS (1)
  1. CARBAMAZEPINE [Suspect]
     Indication: TREMOR
     Dosage: 200MG BID PO
     Route: 048
     Dates: start: 20041101, end: 20050715

REACTIONS (1)
  - DIPLOPIA [None]
